FAERS Safety Report 9718199 (Version 1)
Quarter: 2013Q4

REPORT INFORMATION
  Report Type: Spontaneous
  Country: US (occurrence: US)
  Receive Date: 20131125
  Receipt Date: 20131125
  Transmission Date: 20140711
  Serious: No
  Sender: FDA-Public Use
  Company Number: US-VIVUS-2013V1000089

PATIENT
  Age: 62 Year
  Sex: Female
  Weight: 74.64 kg

DRUGS (4)
  1. QSYMIA 11.25MG/69MG [Suspect]
     Indication: WEIGHT DECREASED
     Route: 048
     Dates: start: 20130204, end: 20130208
  2. QSYMIA 7.5MG/46MG [Suspect]
     Indication: WEIGHT DECREASED
     Route: 048
     Dates: end: 201301
  3. QSYMIA 3.75MG/23MG [Suspect]
     Indication: WEIGHT DECREASED
     Route: 048
     Dates: start: 201212
  4. PHENTERMINE [Concomitant]
     Indication: WEIGHT DECREASED
     Dates: start: 2013, end: 20130208

REACTIONS (1)
  - Chest discomfort [Recovered/Resolved]
